APPROVED DRUG PRODUCT: CEFTRIAXONE
Active Ingredient: CEFTRIAXONE SODIUM
Strength: EQ 10GM BASE/VIAL
Dosage Form/Route: INJECTABLE;INJECTION
Application: A065232 | Product #001
Applicant: HOSPIRA INC
Approved: Aug 2, 2005 | RLD: No | RS: No | Type: DISCN